FAERS Safety Report 7867952-9 (Version None)
Quarter: 2011Q4

REPORT INFORMATION
  Report Type: 
  Country: None (occurrence: None)
  Receive Date: 20111028
  Receipt Date: 20111026
  Transmission Date: 20120403
  Serious: Yes (Other)
  Sender: FDA-Public Use
  Company Number: US-TEVA-306824USA

PATIENT
  Sex: Female

DRUGS (1)
  1. COPAXONE [Suspect]
     Indication: MULTIPLE SCLEROSIS
     Route: 058
     Dates: start: 20110517

REACTIONS (6)
  - PALPITATIONS [None]
  - COUGH [None]
  - SWELLING FACE [None]
  - VOMITING [None]
  - IMMEDIATE POST-INJECTION REACTION [None]
  - PHARYNGEAL OEDEMA [None]
